FAERS Safety Report 8216745-1 (Version None)
Quarter: 2012Q1

REPORT INFORMATION
  Report Type: 
  Country: None (occurrence: None)
  Receive Date: 20120316
  Receipt Date: 20120307
  Transmission Date: 20120608
  Serious: Yes (Other)
  Sender: FDA-Public Use
  Company Number: US-ROCHE-783768

PATIENT
  Sex: Female
  Weight: 56.75 kg

DRUGS (3)
  1. ACCUTANE [Suspect]
     Indication: ACNE
     Dosage: 40MG, 80MG
     Route: 065
     Dates: start: 20010827, end: 20020203
  2. MINOCIN [Concomitant]
  3. AZELEX [Concomitant]

REACTIONS (10)
  - ECZEMA [None]
  - COLITIS ULCERATIVE [None]
  - NEPHROLITHIASIS [None]
  - INFLAMMATORY BOWEL DISEASE [None]
  - CROHN'S DISEASE [None]
  - XEROSIS [None]
  - ORAL HERPES [None]
  - EPISTAXIS [None]
  - STRESS [None]
  - INTESTINAL OBSTRUCTION [None]
